FAERS Safety Report 4343062-2 (Version None)
Quarter: 2004Q2

REPORT INFORMATION
  Report Type: 
  Country: None (occurrence: None)
  Receive Date: 20040416
  Receipt Date: 20040406
  Transmission Date: 20050107
  Serious: Yes (Other)
  Sender: FDA-Public Use
  Company Number: US-JNJFOC-20040401350

PATIENT
  Age: 73 Year
  Sex: Male

DRUGS (4)
  1. DURAGESIC [Suspect]
     Indication: PAIN
     Dosage: 100 UG/HR, 1 IN 72 HIR, TRANSDERMAL
     Route: 062
     Dates: start: 20040201, end: 20040405
  2. CELEBREX [Concomitant]
  3. NEXIUM [Concomitant]
  4. AVALIDE (KARVEA HCT) [Concomitant]

REACTIONS (4)
  - APPLICATION SITE REACTION [None]
  - BLOOD PRESSURE INCREASED [None]
  - DYSPNOEA [None]
  - PHARMACEUTICAL PRODUCT COMPLAINT [None]
